FAERS Safety Report 6899125-0 (Version None)
Quarter: 2010Q3

REPORT INFORMATION
  Report Type: 
  Country: None (occurrence: None)
  Receive Date: 20100802
  Receipt Date: 20080117
  Transmission Date: 20110219
  Serious: No
  Sender: FDA-Public Use
  Company Number: US-PFIZER INC-2007079779

PATIENT
  Sex: Female
  Weight: 52.3 kg

DRUGS (3)
  1. LYRICA [Suspect]
     Indication: INTERVERTEBRAL DISC DEGENERATION
     Dates: start: 20060921, end: 20070922
  2. LYRICA [Suspect]
     Indication: SPINAL COLUMN STENOSIS
  3. DICLOFENAC [Concomitant]
     Indication: GASTROINTESTINAL DISORDER

REACTIONS (7)
  - FEELING COLD [None]
  - HEADACHE [None]
  - HEPATIC ENZYME INCREASED [None]
  - MALAISE [None]
  - MUSCULAR WEAKNESS [None]
  - MUSCULOSKELETAL DISCOMFORT [None]
  - SEDATION [None]
